FAERS Safety Report 4285924-0 (Version None)
Quarter: 2004Q1

REPORT INFORMATION
  Report Type: 
  Country: None (occurrence: None)
  Receive Date: 20040205
  Receipt Date: 20040123
  Transmission Date: 20041129
  Serious: Yes (Hospitalization, Other)
  Sender: FDA-Public Use
  Company Number: ES-GLAXOSMITHKLINE-B0321032A

PATIENT
  Age: 62 Year
  Sex: Female

DRUGS (6)
  1. VENTOLIN [Suspect]
     Indication: ASTHMA
     Dosage: 900MCG THREE TIMES PER DAY
     Route: 055
  2. ATROVENT [Suspect]
     Indication: ASTHMA
     Dosage: 180MCG THREE TIMES PER DAY
     Route: 055
  3. FLUTICASONE PROPIONATE [Suspect]
     Indication: ASTHMA
     Route: 055
  4. THEOPHYLLINE [Concomitant]
     Indication: ASTHMA
     Dosage: 800MG TWICE PER DAY
     Route: 048
  5. PREDNISONA [Concomitant]
     Indication: ASTHMA
     Dosage: 5MG PER DAY
     Route: 048
  6. ALENDRONATE SODIUM [Concomitant]
     Indication: OSTEOPOROSIS
     Dosage: 70MG WEEKLY
     Route: 048

REACTIONS (3)
  - DRUG INTERACTION [None]
  - GLAUCOMA [None]
  - VISUAL ACUITY REDUCED [None]
